FAERS Safety Report 6465492-5 (Version None)
Quarter: 2009Q4

REPORT INFORMATION
  Report Type: 
  Country: None (occurrence: None)
  Receive Date: 20091124
  Receipt Date: 20091110
  Transmission Date: 20100525
  Serious: Yes (Hospitalization)
  Sender: FDA-Public Use
  Company Number: 2009AL001096

PATIENT
  Age: 43 Year
  Sex: Female

DRUGS (23)
  1. SPIRONOLACTONE [Suspect]
     Dosage: 50 MG; PO
     Route: 048
     Dates: end: 20081013
  2. LISINOPRIL [Concomitant]
  3. RIMONABANT [Concomitant]
  4. IRBESARTAN [Concomitant]
  5. ACETYLSALICYLIC ACID [Concomitant]
  6. OMEPRAZOLE [Concomitant]
  7. FUROSEMIDE [Concomitant]
  8. ISOSORBIDE MONONITRATE [Concomitant]
  9. ISPAGHULA HUSK [Concomitant]
  10. GLYCERYL TRINITRATE [Concomitant]
  11. ATENOLOL [Concomitant]
  12. CODEINE [Concomitant]
  13. QUININE SULPHATE [Concomitant]
  14. TRIMETHOPRIM [Concomitant]
  15. PARACETAMOL [Concomitant]
  16. NITRAZEPAM [Concomitant]
  17. LOVAZA [Concomitant]
  18. LIDOCAINE [Concomitant]
  19. ATORVASTATIN CALCIUM [Concomitant]
  20. VESICARE [Concomitant]
  21. BISOPROLOL [Concomitant]
  22. OMACOR [Concomitant]
  23. SOLIFENACIN [Concomitant]

REACTIONS (18)
  - ATRIAL FIBRILLATION [None]
  - BACK PAIN [None]
  - DEHYDRATION [None]
  - DYSPEPSIA [None]
  - FEAR OF EATING [None]
  - FLANK PAIN [None]
  - GASTROOESOPHAGEAL REFLUX DISEASE [None]
  - HAEMORRHOIDS [None]
  - HYPERTENSION [None]
  - NAUSEA [None]
  - NEPHROLITHIASIS [None]
  - NEPHROPATHY TOXIC [None]
  - OEDEMA [None]
  - RECTAL HAEMORRHAGE [None]
  - RENAL FAILURE ACUTE [None]
  - URINARY TRACT INFECTION [None]
  - VOMITING [None]
  - WEIGHT INCREASED [None]
